FAERS Safety Report 21371621 (Version 1)
Quarter: 2022Q3

REPORT INFORMATION
  Report Type: Spontaneous
  Country: FR (occurrence: FR)
  Receive Date: 20220923
  Receipt Date: 20220923
  Transmission Date: 20221027
  Serious: Yes (Hospitalization)
  Sender: FDA-Public Use
  Company Number: None

PATIENT
  Age: 19 Year
  Sex: Female

DRUGS (2)
  1. BRINTELLIX [Suspect]
     Active Substance: VORTIOXETINE HYDROBROMIDE
     Indication: Suicide attempt
     Dosage: UNK
     Route: 048
     Dates: start: 20220902
  2. VALPROMIDE [Suspect]
     Active Substance: VALPROMIDE
     Indication: Suicide attempt
     Dosage: 40 DOSAGE FORM
     Route: 048
     Dates: start: 20220902

REACTIONS (2)
  - Poisoning deliberate [Recovered/Resolved]
  - Somnolence [Recovered/Resolved]

NARRATIVE: CASE EVENT DATE: 20220903
